FAERS Safety Report 7464867-5 (Version None)
Quarter: 2011Q2

REPORT INFORMATION
  Report Type: 
  Country: None (occurrence: None)
  Receive Date: 20110509
  Receipt Date: 20110411
  Transmission Date: 20111010
  Serious: Yes (Hospitalization, Other)
  Sender: FDA-Public Use
  Company Number: US-BAYER-201031724NA

PATIENT
  Age: 31 Year
  Sex: Female
  Weight: 72.727 kg

DRUGS (13)
  1. YAZ [Suspect]
     Indication: PREMENSTRUAL SYNDROME
     Route: 048
     Dates: start: 20040101, end: 20080101
  2. YASMIN [Suspect]
     Indication: PREMENSTRUAL SYNDROME
     Route: 048
     Dates: start: 20040101, end: 20080101
  3. YASMIN [Suspect]
  4. CELEXA [Concomitant]
     Indication: ANXIETY
     Dates: start: 20060101
  5. NAPROXEN [Concomitant]
  6. INDERAL LA [Concomitant]
     Indication: HYPERTENSION
  7. PERCOCET [Concomitant]
  8. METFORMIN [Concomitant]
     Indication: MULTIPLE SYSTEM ATROPHY
     Dates: start: 20050101
  9. IBUPROFEN [Concomitant]
     Dates: start: 20050101, end: 20080101
  10. MOTRIN [Concomitant]
     Indication: PAIN
  11. YAZ [Suspect]
  12. CELEXA [Concomitant]
     Indication: HYPERTENSION
  13. INDERAL LA [Concomitant]
     Indication: MIGRAINE
     Dates: start: 20050101

REACTIONS (4)
  - RENAL INJURY [None]
  - CHOLECYSTECTOMY [None]
  - CHOLELITHIASIS [None]
  - PAIN [None]
